FAERS Safety Report 22181525 (Version 2)
Quarter: 2023Q2

REPORT INFORMATION
  Report Type: Spontaneous
  Country: US (occurrence: US)
  Receive Date: 20230406
  Receipt Date: 20230418
  Transmission Date: 20230721
  Serious: Yes (Life-Threatening, Hospitalization)
  Sender: FDA-Public Use
  Company Number: US-TEVA-2023-US-2872726

PATIENT
  Age: 54 Year
  Sex: Male

DRUGS (1)
  1. METHOTREXATE [Suspect]
     Active Substance: METHOTREXATE
     Indication: Systemic scleroderma
     Dosage: UNTIL HE REACHED A DOSE OF 20 MG EVERY WEEK
     Route: 065

REACTIONS (7)
  - Cardiomyopathy acute [Unknown]
  - Right ventricular failure [Unknown]
  - Cardiac failure [Unknown]
  - Myocardial necrosis [Unknown]
  - Renal impairment [Unknown]
  - Cardiotoxicity [Recovering/Resolving]
  - Ejection fraction decreased [Recovering/Resolving]
